FAERS Safety Report 25030654 (Version 2)
Quarter: 2025Q2

REPORT INFORMATION
  Report Type: Spontaneous
  Country: GB (occurrence: GB)
  Receive Date: 20250303
  Receipt Date: 20250418
  Transmission Date: 20250717
  Serious: Yes (Other)
  Sender: ACCORD
  Company Number: None

PATIENT
  Sex: Female

DRUGS (5)
  1. TOPIRAMATE [Suspect]
     Active Substance: TOPIRAMATE
     Indication: Product used for unknown indication
     Dates: start: 20070910
  2. BETAMETHASONE\CALCIPOTRIENE [Concomitant]
     Active Substance: BETAMETHASONE\CALCIPOTRIENE
     Dates: start: 20241218, end: 20250130
  3. BETAMETHASONE [Concomitant]
     Active Substance: BETAMETHASONE
     Dates: start: 20241218, end: 20250130
  4. CALCIPOTRIENE [Concomitant]
     Active Substance: CALCIPOTRIENE
     Dates: start: 20241218, end: 20250130
  5. CLONAZEPAM [Concomitant]
     Active Substance: CLONAZEPAM
     Dosage: CLONAZEPAM 500MCG ONCE AT NIGHT

REACTIONS (7)
  - Autism spectrum disorder [Unknown]
  - Foetal exposure during pregnancy [Not Recovered/Not Resolved]
  - Coordination abnormal [Unknown]
  - Developmental delay [Unknown]
  - Sensory processing disorder [Unknown]
  - Fine motor delay [Unknown]
  - Social (pragmatic) communication disorder [Unknown]
